FAERS Safety Report 7587265-2 (Version None)
Quarter: 2011Q3

REPORT INFORMATION
  Report Type: 
  Country: None (occurrence: None)
  Receive Date: 20110701
  Receipt Date: 20110629
  Transmission Date: 20111222
  Serious: Yes (Death, Other)
  Sender: FDA-Public Use
  Company Number: JP-ABBOTT-11P-087-0734095-00

PATIENT
  Age: 80 Year
  Sex: Female

DRUGS (7)
  1. METHOTREXATE [Concomitant]
     Indication: RHEUMATOID ARTHRITIS
     Route: 048
  2. MISOPROSTOL [Concomitant]
     Indication: PRODUCT USED FOR UNKNOWN INDICATION
  3. LAFUTIDINE [Concomitant]
     Indication: PRODUCT USED FOR UNKNOWN INDICATION
     Route: 048
  4. BUCILLAMINE [Concomitant]
     Indication: RHEUMATOID ARTHRITIS
     Route: 048
  5. CELECOXIB [Concomitant]
     Indication: PRODUCT USED FOR UNKNOWN INDICATION
     Route: 048
  6. HUMIRA [Suspect]
     Indication: RHEUMATOID ARTHRITIS
     Route: 058
     Dates: start: 20100101, end: 20110501
  7. DICLOFENAC SODIUM [Concomitant]
     Indication: PRODUCT USED FOR UNKNOWN INDICATION
     Route: 054

REACTIONS (15)
  - HYPOTENSION [None]
  - BLOOD CREATININE INCREASED [None]
  - VASOCONSTRICTION [None]
  - PAIN IN EXTREMITY [None]
  - SEPTIC SHOCK [None]
  - CELLULITIS [None]
  - PANCYTOPENIA [None]
  - BACTERIAL INFECTION [None]
  - CARDIAC ARREST [None]
  - FEELING HOT [None]
  - PAIN [None]
  - INFLAMMATION [None]
  - URINE OUTPUT DECREASED [None]
  - BRADYCARDIA [None]
  - OEDEMA PERIPHERAL [None]
